FAERS Safety Report 8566420-9 (Version None)
Quarter: 2012Q3

REPORT INFORMATION
  Report Type: 
  Country: None (occurrence: None)
  Receive Date: 20120803
  Receipt Date: 20111230
  Transmission Date: 20120928
  Serious: No
  Sender: FDA-Public Use
  Company Number: US-ABBOTT-12P-163-0888540-00

PATIENT
  Sex: Female
  Weight: 89.438 kg

DRUGS (5)
  1. PHENTERMINE [Concomitant]
     Indication: WEIGHT DECREASED
     Dosage: NOT REPORTED
  2. NIASPAN [Suspect]
     Indication: PRODUCT USED FOR UNKNOWN INDICATION
     Dates: start: 20100101
  3. M.V.I. [Concomitant]
     Indication: PRODUCT USED FOR UNKNOWN INDICATION
     Dosage: NOT REPORTED
  4. VITAMIN D [Concomitant]
     Indication: PRODUCT USED FOR UNKNOWN INDICATION
     Dosage: NOT REPORTED
  5. ASPIRIN [Concomitant]
     Indication: PRODUCT USED FOR UNKNOWN INDICATION
     Dosage: 30 MINUTE BEFORE NIASPAN

REACTIONS (4)
  - PARAESTHESIA [None]
  - PRURITUS [None]
  - INSOMNIA [None]
  - PAIN OF SKIN [None]
